FAERS Safety Report 15587143 (Version 1)
Quarter: 2018Q4

REPORT INFORMATION
  Report Type: Spontaneous
  Country: US (occurrence: US)
  Receive Date: 20181105
  Receipt Date: 20181105
  Transmission Date: 20190205
  Serious: No
  Sender: FDA-Public Use
  Company Number: None

PATIENT
  Age: 59 Year
  Sex: Female

DRUGS (1)
  1. PREDNISONE 20MG [Suspect]
     Active Substance: PREDNISONE
     Dosage: ?          OTHER DOSE:TAPERING DOSE;OTHER FREQUENCY:8 DAYS;?
     Route: 048
     Dates: start: 20181003

REACTIONS (6)
  - Hot flush [None]
  - Hypoaesthesia [None]
  - Paraesthesia [None]
  - Feeling hot [None]
  - Erythema [None]
  - Asthenia [None]

NARRATIVE: CASE EVENT DATE: 20181003
